FAERS Safety Report 9902978 (Version 2)
Quarter: 2014Q1

REPORT INFORMATION
  Report Type: Spontaneous
  Country: NL (occurrence: NL)
  Receive Date: 20140217
  Receipt Date: 20140217
  Transmission Date: 20141002
  Serious: Yes (Other)
  Sender: FDA-Public Use
  Company Number: PHHY2014NL012512

PATIENT
  Sex: Male

DRUGS (1)
  1. RITALIN [Suspect]
     Dosage: 25 MG, BID
     Dates: start: 20140127

REACTIONS (12)
  - Intentional drug misuse [Unknown]
  - Fatigue [Unknown]
  - Abnormal behaviour [Unknown]
  - Psychiatric symptom [Unknown]
  - Hypoaesthesia [Unknown]
  - Paraesthesia [Unknown]
  - Fear [Unknown]
  - Dissociation [Unknown]
  - Hyperhidrosis [Unknown]
  - Terminal insomnia [Unknown]
  - Restlessness [Not Recovered/Not Resolved]
  - Sleep disorder [Unknown]
